FAERS Safety Report 4873167-9 (Version None)
Quarter: 2006Q1

REPORT INFORMATION
  Report Type: 
  Country: None (occurrence: None)
  Receive Date: 20060104
  Receipt Date: 20060104
  Transmission Date: 20060701
  Serious: Yes (Other)
  Sender: FDA-Public Use
  Company Number: None

PATIENT
  Sex: Male
  Weight: 89.8122 kg

DRUGS (1)
  1. VYTORIN [Suspect]
     Indication: BLOOD CHOLESTEROL INCREASED
     Dosage: 1 PILL   DAILY   PO
     Route: 048
     Dates: start: 20051005, end: 20051224

REACTIONS (5)
  - DRY EYE [None]
  - EYE PAIN [None]
  - PHOTOPHOBIA [None]
  - VISION BLURRED [None]
  - VISUAL DISTURBANCE [None]
